FAERS Safety Report 15572019 (Version 2)
Quarter: 2019Q1

REPORT INFORMATION
  Report Type: Spontaneous
  Country: US (occurrence: US)
  Receive Date: 20181031
  Receipt Date: 20190125
  Transmission Date: 20190417
  Serious: No
  Sender: FDA-Public Use
  Company Number: US-EMMAUS MEDICAL, INC.-EMM201809-000529

PATIENT
  Sex: Female

DRUGS (5)
  1. HYDROXYUREA. [Concomitant]
     Active Substance: HYDROXYUREA
  2. MEDROXYPROGESTERONE ACETATE. [Concomitant]
     Active Substance: MEDROXYPROGESTERONE ACETATE
  3. ENDARI [Suspect]
     Active Substance: GLUTAMINE
     Indication: SICKLE CELL DISEASE
     Route: 048
  4. BACOFLEN [Concomitant]
  5. ASPIRIN. [Concomitant]
     Active Substance: ASPIRIN

REACTIONS (1)
  - Medication error [Unknown]
